FAERS Safety Report 6882230-2 (Version None)
Quarter: 2010Q3

REPORT INFORMATION
  Report Type: 
  Country: None (occurrence: None)
  Receive Date: 20100729
  Receipt Date: 20100721
  Transmission Date: 20110219
  Serious: Yes (Hospitalization)
  Sender: FDA-Public Use
  Company Number: TR-ELI_LILLY_AND_COMPANY-TR201007005592

PATIENT
  Age: 34 Year
  Sex: Female

DRUGS (5)
  1. HUMULIN R [Suspect]
     Indication: GESTATIONAL DIABETES
     Dosage: 3 U, EACH MORNING
     Route: 058
     Dates: end: 20100629
  2. HUMULIN R [Suspect]
     Dosage: 2 U, NOON
     Route: 058
     Dates: end: 20100629
  3. HUMULIN R [Suspect]
     Dosage: 2 U, EACH EVENING
     Route: 058
     Dates: end: 20100629
  4. HUMULIN N [Suspect]
     Indication: GESTATIONAL DIABETES
     Dosage: 7 U, EACH MORNING
     Route: 058
     Dates: end: 20100629
  5. HUMULIN N [Suspect]
     Dosage: 4 U, NIGHT
     Route: 058
     Dates: end: 20100629

REACTIONS (3)
  - DRUG EXPOSURE DURING PREGNANCY [None]
  - HEPATIC ENZYME INCREASED [None]
  - PREMATURE LABOUR [None]
